FAERS Safety Report 5684730-X (Version None)
Quarter: 2008Q1

REPORT INFORMATION
  Report Type: 
  Country: None (occurrence: None)
  Receive Date: 20080328
  Receipt Date: 20070806
  Transmission Date: 20080703
  Serious: No
  Sender: FDA-Public Use
  Company Number: US-BRISTOL-MYERS SQUIBB COMPANY-13868740

PATIENT
  Age: 61 Year
  Sex: Female
  Weight: 73 kg

DRUGS (19)
  1. ERBITUX [Suspect]
     Indication: COLON CANCER
     Route: 042
     Dates: start: 20070420, end: 20070716
  2. CAMPTOSAR [Concomitant]
  3. PROCRIT [Concomitant]
  4. NYSTATIN [Concomitant]
  5. SYNTHROID [Concomitant]
  6. FERROUS SULFATE TAB [Concomitant]
  7. MULTI-VITAMIN [Concomitant]
  8. FENTANYL TRANSDERMAL SYSTEM [Concomitant]
  9. HYDROXYZINE [Concomitant]
  10. LEVAQUIN [Concomitant]
  11. COLACE [Concomitant]
  12. LACTULOSE [Concomitant]
  13. PHENERGAN HCL [Concomitant]
  14. TYLENOL (CAPLET) [Concomitant]
     Indication: PREMEDICATION
  15. KYTRIL [Concomitant]
     Indication: PREMEDICATION
  16. BENADRYL [Concomitant]
     Indication: PREMEDICATION
  17. ANZEMET [Concomitant]
     Indication: PREMEDICATION
  18. DECADRON [Concomitant]
     Indication: PREMEDICATION
  19. ATROPINE [Concomitant]

REACTIONS (2)
  - CONJUNCTIVITIS [None]
  - INFUSION RELATED REACTION [None]
